FAERS Safety Report 5928849-4 (Version None)
Quarter: 2008Q4

REPORT INFORMATION
  Report Type: 
  Country: None (occurrence: None)
  Receive Date: 20081020
  Receipt Date: 20081014
  Transmission Date: 20090506
  Serious: Yes (Other)
  Sender: FDA-Public Use
  Company Number: 2008JP004958

PATIENT
  Age: 80 Year
  Sex: Male

DRUGS (2)
  1. VESICARE [Suspect]
     Indication: HYPERTONIC BLADDER
     Dosage: 5 MG, UNKNOWN/D, ORAL
     Route: 048
     Dates: start: 20070327, end: 20070410
  2. HARNAL(TAMSULOSIN) ORODISPERSIBLE CR TABLET, UNKNOWN [Suspect]
     Indication: BENIGN PROSTATIC HYPERPLASIA
     Dosage: 0.2 MG, UNKNOWN/D, ORAL
     Route: 048

REACTIONS (1)
  - METASTASES TO LIVER [None]
